FAERS Safety Report 4511194-1 (Version None)
Quarter: 2004Q4

REPORT INFORMATION
  Report Type: 
  Country: None (occurrence: None)
  Receive Date: 20041122
  Receipt Date: 20041122
  Transmission Date: 20050328
  Serious: Yes (Life-Threatening, Hospitalization, Disabling)
  Sender: FDA-Public Use
  Company Number: None

PATIENT
  Age: 48 Year
  Sex: Male
  Weight: 97.5234 kg

DRUGS (5)
  1. PLAVIX [Suspect]
     Indication: CARDIOVASCULAR DISORDER
     Dosage: 1 DAY ORAL
     Route: 048
     Dates: start: 20040604, end: 20040928
  2. PLAVIX [Suspect]
     Indication: PROPHYLAXIS
     Dosage: 1 DAY ORAL
     Route: 048
     Dates: start: 20040604, end: 20040928
  3. ASPIRIN [Suspect]
     Indication: THROMBOSIS PROPHYLAXIS
     Dosage: 1 DAY ORAL
     Route: 048
     Dates: start: 20040604, end: 20040928
  4. VIOXX [Concomitant]
  5. HEPARIN [Concomitant]

REACTIONS (8)
  - APHASIA [None]
  - COGNITIVE DISORDER [None]
  - DYSPHASIA [None]
  - HAEMORRHAGIC TRANSFORMATION STROKE [None]
  - HEMIPARESIS [None]
  - INCOHERENT [None]
  - SUBDURAL HAEMATOMA [None]
  - VISUAL DISTURBANCE [None]
